FAERS Safety Report 6240695-3 (Version None)
Quarter: 2009Q2

REPORT INFORMATION
  Report Type: 
  Country: None (occurrence: None)
  Receive Date: 20090623
  Receipt Date: 20090129
  Transmission Date: 20091009
  Serious: No
  Sender: FDA-Public Use
  Company Number: US-ASTRAZENECA-2009UW02600

PATIENT
  Age: 84 Year
  Sex: Male
  Weight: 68 kg

DRUGS (8)
  1. PULMICORT FLEXHALER [Suspect]
     Indication: CHRONIC OBSTRUCTIVE PULMONARY DISEASE
     Dosage: 720 MCG, 2 PUFFS TWICE DAILY
     Route: 055
     Dates: start: 20081220, end: 20090124
  2. ALBUTEROL [Concomitant]
  3. ATROVENT [Concomitant]
  4. DILTIAZEM [Concomitant]
  5. LASIX [Concomitant]
  6. CARDURA [Concomitant]
  7. PEPCID [Concomitant]
  8. ASPIRIN [Concomitant]

REACTIONS (2)
  - BLOOD PRESSURE [None]
  - ILL-DEFINED DISORDER [None]
